FAERS Safety Report 6292118-6 (Version None)
Quarter: 2009Q3

REPORT INFORMATION
  Report Type: 
  Country: None (occurrence: None)
  Receive Date: 20090730
  Receipt Date: 20090730
  Transmission Date: 20100115
  Serious: Yes (Hospitalization)
  Sender: FDA-Public Use
  Company Number: None

PATIENT
  Sex: Female
  Weight: 70 kg

DRUGS (11)
  1. BELATACEPT (BMS224818) 100MG/VIAL [Suspect]
     Indication: RENAL TRANSPLANT
     Dosage: 5 MG/KG IV Q 4 WEEKS
     Route: 042
     Dates: start: 20090430
  2. MYCOPHENOLATE MOFETIL [Concomitant]
  3. PREDNISONE [Concomitant]
  4. MACROBID [Concomitant]
  5. ALPRAZOLAM [Concomitant]
  6. PEPCID AC [Concomitant]
  7. POTASSIUM PHOSPHATES [Concomitant]
  8. SIMVASTATIN [Concomitant]
  9. M.V.I. [Concomitant]
  10. PROZAC [Concomitant]
  11. ASPIRIN [Concomitant]

REACTIONS (2)
  - BLOOD CREATININE INCREASED [None]
  - KIDNEY TRANSPLANT REJECTION [None]
